FAERS Safety Report 8258781-5 (Version None)
Quarter: 2012Q2

REPORT INFORMATION
  Report Type: 
  Country: None (occurrence: None)
  Receive Date: 20120404
  Receipt Date: 20120326
  Transmission Date: 20120825
  Serious: Yes (Hospitalization)
  Sender: FDA-Public Use
  Company Number: GR-CUBIST-2012S1000307

PATIENT
  Age: 61 Year
  Sex: Male

DRUGS (7)
  1. CUBICIN [Suspect]
     Indication: FUSARIUM INFECTION
     Dosage: DOSE UNIT:U
  2. CLINDAMYCIN [Concomitant]
     Indication: PRODUCT USED FOR UNKNOWN INDICATION
     Dosage: DOSE UNIT:U
  3. MEROPENEM [Concomitant]
     Indication: PRODUCT USED FOR UNKNOWN INDICATION
     Dosage: DOSE UNIT:U
  4. VORICONAZOLE [Concomitant]
     Indication: PRODUCT USED FOR UNKNOWN INDICATION
     Dosage: DOSE UNIT:U
  5. CUBICIN [Suspect]
     Indication: ENTEROCOCCUS TEST POSITIVE
     Dosage: DOSE UNIT:U
  6. CIPROFLOXACIN [Concomitant]
     Indication: PRODUCT USED FOR UNKNOWN INDICATION
     Dosage: DOSE UNIT:U
  7. CUBICIN [Suspect]
     Indication: STAPHYLOCOCCAL INFECTION
     Dosage: DOSE UNIT:U

REACTIONS (9)
  - OSTEOMYELITIS [None]
  - STENOTROPHOMONAS INFECTION [None]
  - ENTEROCOCCAL INFECTION [None]
  - INFECTED SKIN ULCER [None]
  - AMPUTATION [None]
  - NECROSIS [None]
  - FUSARIUM INFECTION [None]
  - STAPHYLOCOCCAL INFECTION [None]
  - CONDITION AGGRAVATED [None]
